FAERS Safety Report 24300842 (Version 2)
Quarter: 2024Q3

REPORT INFORMATION
  Report Type: Spontaneous
  Country: GB (occurrence: GB)
  Receive Date: 20240910
  Receipt Date: 20240918
  Transmission Date: 20241016
  Serious: Yes (Other)
  Sender: ROCHE
  Company Number: GB-ROCHE-10000073038

PATIENT
  Sex: Female

DRUGS (3)
  1. EVRYSDI [Suspect]
     Active Substance: RISDIPLAM
     Indication: Product used for unknown indication
     Route: 048
     Dates: start: 202312
  2. SPINRAZA [Concomitant]
     Active Substance: NUSINERSEN
  3. ZOLGENSMA [Concomitant]
     Active Substance: ONASEMNOGENE ABEPARVOVEC-XIOI

REACTIONS (5)
  - Muscular weakness [Unknown]
  - Asthenia [Unknown]
  - General physical health deterioration [Unknown]
  - Disability [Unknown]
  - Muscular weakness [Unknown]
